FAERS Safety Report 6431977-0 (Version None)
Quarter: 2009Q4

REPORT INFORMATION
  Report Type: 
  Country: None (occurrence: None)
  Receive Date: 20091109
  Receipt Date: 20091102
  Transmission Date: 20100525
  Serious: Yes (Hospitalization)
  Sender: FDA-Public Use
  Company Number: US-B.I. PHARMACEUTICALS,INC./RIDGEFIELD-2009-BP-12734BP

PATIENT
  Sex: Female

DRUGS (18)
  1. SPIRIVA [Suspect]
     Indication: CHRONIC OBSTRUCTIVE PULMONARY DISEASE
     Dosage: 18 MCG
     Route: 055
     Dates: start: 20070101
  2. SPIRIVA [Suspect]
     Indication: EMPHYSEMA
  3. ADVAIR DISKUS 100/50 [Concomitant]
     Indication: ASTHMA
  4. MAXAIR [Concomitant]
     Indication: ASTHMA
  5. SINGULAIR [Concomitant]
     Indication: ASTHMA
  6. HUMIRA [Concomitant]
     Indication: RHEUMATOID ARTHRITIS
  7. ZYRTEC [Concomitant]
     Indication: HYPERSENSITIVITY
  8. OMNARIS [Concomitant]
     Indication: HYPERSENSITIVITY
  9. PROTONIX [Concomitant]
     Indication: GASTROOESOPHAGEAL REFLUX DISEASE
  10. LABETALOL HCL [Concomitant]
     Indication: HYPERTENSION
  11. LASIX [Concomitant]
     Indication: HYPERTENSION
  12. COZAAR [Concomitant]
     Indication: HYPERTENSION
  13. CARTIA XT [Concomitant]
     Indication: HYPERTENSION
  14. PRAVACHOL [Concomitant]
     Indication: BLOOD CHOLESTEROL INCREASED
  15. ZETIA [Concomitant]
     Indication: BLOOD CHOLESTEROL INCREASED
  16. PREMARIN [Concomitant]
     Indication: HYSTERECTOMY
  17. SERTRALINE HCL [Concomitant]
     Indication: DEPRESSION
  18. BACLOFEN [Concomitant]
     Indication: MUSCLE SPASMS

REACTIONS (4)
  - DYSPNOEA EXERTIONAL [None]
  - EJECTION FRACTION DECREASED [None]
  - PULMONARY FUNCTION TEST DECREASED [None]
  - TRANSIENT ISCHAEMIC ATTACK [None]
